FAERS Safety Report 10061449 (Version 2)
Quarter: 2014Q2

REPORT INFORMATION
  Report Type: Spontaneous
  Country: JP (occurrence: JP)
  Receive Date: 20140407
  Receipt Date: 20140502
  Transmission Date: 20141212
  Serious: Yes (Hospitalization)
  Sender: FDA-Public Use
  Company Number: JP-JNJFOC-20140401611

PATIENT
  Age: 77 Year
  Sex: Male
  Weight: 82 kg

DRUGS (12)
  1. XARELTO [Suspect]
     Indication: EMBOLIC STROKE
     Route: 048
     Dates: end: 20140314
  2. XARELTO [Suspect]
     Indication: CEREBROVASCULAR ACCIDENT PROPHYLAXIS
     Route: 048
     Dates: end: 20140314
  3. JANUVIA [Concomitant]
     Route: 048
  4. VASOLAN [Concomitant]
     Route: 065
  5. AMARYL [Concomitant]
     Indication: TYPE 2 DIABETES MELLITUS
     Route: 048
  6. NESINA [Concomitant]
     Indication: TYPE 2 DIABETES MELLITUS
     Route: 048
  7. LASIX [Concomitant]
     Indication: HYPERTENSION
     Route: 048
  8. FEBUXOSTAT [Concomitant]
     Indication: HYPERURICAEMIA
     Route: 048
  9. MAINTATE [Concomitant]
     Indication: HYPERTENSION
     Route: 048
  10. ARGAMATE [Concomitant]
     Indication: HYPERKALAEMIA
     Route: 048
  11. ADOAIR [Concomitant]
     Indication: ASTHMA
     Dosage: 2 PUFFS
     Route: 039
  12. ACINON [Concomitant]
     Indication: PROPHYLAXIS
     Route: 048

REACTIONS (1)
  - Cerebral artery embolism [Recovering/Resolving]
